FAERS Safety Report 8240959-8 (Version None)
Quarter: 2012Q1

REPORT INFORMATION
  Report Type: 
  Country: None (occurrence: None)
  Receive Date: 20120328
  Receipt Date: 20120326
  Transmission Date: 20120608
  Serious: No
  Sender: FDA-Public Use
  Company Number: US-PFIZER INC-2012041712

PATIENT
  Sex: Female

DRUGS (1)
  1. NEOSPORIN [Suspect]
     Dosage: UNK
     Route: 031

REACTIONS (1)
  - NO ADVERSE EVENT [None]
